FAERS Safety Report 4865186-3 (Version None)
Quarter: 2005Q4

REPORT INFORMATION
  Report Type: 
  Country: None (occurrence: None)
  Receive Date: 20051223
  Receipt Date: 20051222
  Transmission Date: 20060501
  Serious: Yes (Life-Threatening, Hospitalization)
  Sender: FDA-Public Use
  Company Number: US-GLAXOSMITHKLINE-A0586819A

PATIENT
  Age: 70 Year
  Sex: Female

DRUGS (9)
  1. COREG [Suspect]
     Indication: CARDIAC FAILURE CONGESTIVE
     Dosage: 3.125MG TWICE PER DAY
     Route: 048
     Dates: start: 20051221
  2. ASPIRIN [Concomitant]
  3. LEVAQUIN [Concomitant]
  4. METHYLPREDNISOLONE [Concomitant]
  5. ATIVAN [Concomitant]
  6. PROTONIX [Concomitant]
  7. CEFTRIAXONE [Concomitant]
  8. ALBUTEROL [Concomitant]
  9. IPRATROPIUM BROMIDE [Concomitant]

REACTIONS (4)
  - BLOOD CREATINE PHOSPHOKINASE INCREASED [None]
  - BLOOD CREATINE PHOSPHOKINASE MB INCREASED [None]
  - MYOCARDIAL INFARCTION [None]
  - TROPONIN INCREASED [None]
